FAERS Safety Report 6286518-8 (Version None)
Quarter: 2009Q3

REPORT INFORMATION
  Report Type: 
  Country: None (occurrence: None)
  Receive Date: 20090727
  Receipt Date: 20090727
  Transmission Date: 20100115
  Serious: No
  Sender: FDA-Public Use
  Company Number: None

PATIENT
  Sex: Male

DRUGS (1)
  1. ELECTRONIC CIGARRETTE [Suspect]

REACTIONS (6)
  - CHILLS [None]
  - COUGH [None]
  - DYSPNOEA [None]
  - PAIN [None]
  - PRODUCTIVE COUGH [None]
  - WHEEZING [None]
